FAERS Safety Report 10584722 (Version 1)
Quarter: 2014Q4

REPORT INFORMATION
  Report Type: Report from Study
  Country: LB (occurrence: LB)
  Receive Date: 20141114
  Receipt Date: 20141114
  Transmission Date: 20150529
  Serious: Yes (Death)
  Sender: FDA-Public Use
  Company Number: LB-SA-2014SA156036

PATIENT
  Sex: Male

DRUGS (2)
  1. LANTUS [Suspect]
     Active Substance: INSULIN GLARGINE
     Indication: TYPE 2 DIABETES MELLITUS
     Route: 065
     Dates: start: 20140912, end: 20141024
  2. RITUXIMAB [Concomitant]
     Active Substance: RITUXIMAB
     Indication: CHEMOTHERAPY

REACTIONS (1)
  - Acute respiratory distress syndrome [Fatal]

NARRATIVE: CASE EVENT DATE: 20141024
